FAERS Safety Report 5143054-X (Version None)
Quarter: 2006Q4

REPORT INFORMATION
  Report Type: 
  Country: None (occurrence: None)
  Receive Date: 20061103
  Receipt Date: 20060922
  Transmission Date: 20070319
  Serious: Yes (Other)
  Sender: FDA-Public Use
  Company Number: PHBS2006JP14820

PATIENT
  Sex: Female

DRUGS (2)
  1. LOXONIN [Concomitant]
     Dates: start: 20060922
  2. VOLTAREN [Suspect]
     Route: 048
     Dates: start: 20060918, end: 20060922

REACTIONS (4)
  - COLLAGEN DISORDER [None]
  - MUSCULOSKELETAL STIFFNESS [None]
  - MYALGIA [None]
  - PYREXIA [None]
